FAERS Safety Report 9592459 (Version 1)
Quarter: 2013Q3

REPORT INFORMATION
  Report Type: Spontaneous
  Country: US (occurrence: None)
  Receive Date: 20130930
  Receipt Date: 20130930
  Transmission Date: 20140515
  Serious: Yes (Other)
  Sender: FDA-Public Use
  Company Number: 1000046694

PATIENT
  Age: 66 Year
  Sex: Female

DRUGS (5)
  1. LINZESS (LINACLOTIDE) (290 MICROGRAM, CAPSULES) [Suspect]
     Indication: IRRITABLE BOWEL SYNDROME
     Dosage: 290MCG (290MCG, 1 IN 1)
     Dates: start: 20130710
  2. CYMBALTA (DULOXETINE HYDROCHLORIDE) (DULOXETINE HYDROCHLORIDE) [Concomitant]
  3. LYRICA (PREGABALIN) (PREGABALIN) [Concomitant]
  4. XANAX [Concomitant]
  5. PROBIOTICS (PROBIOTICS) (PROBIOTICS) [Concomitant]

REACTIONS (2)
  - Diarrhoea [None]
  - Abdominal pain [None]
